FAERS Safety Report 8889220 (Version 2)
Quarter: 2012Q4

REPORT INFORMATION
  Report Type: 
  Country: US (occurrence: US)
  Receive Date: 20121106
  Receipt Date: 20121128
  Transmission Date: 20130627
  Serious: Yes (Hospitalization)
  Sender: FDA-Public Use
  Company Number: US-PFIZER INC-2012272121

PATIENT
  Age: 81 Year
  Sex: Male
  Weight: 69 kg

DRUGS (9)
  1. TEMSIROLIMUS [Suspect]
     Indication: HODGKIN^S LYMPHOMA
     Dosage: 25 mg, weekly, Intravenous drip
     Route: 041
     Dates: start: 20120707, end: 20120816
  2. TYLENOL [Concomitant]
     Indication: PAIN
     Dosage: 325 mg, 1 tab by mouth every 6 hours, as needed
     Route: 048
  3. ACYCLOVIR [Concomitant]
     Dosage: 400 mg, 1 tab by mouth, 2x/day
     Route: 048
  4. ALPRAZOLAM [Concomitant]
     Dosage: 0.5 mg, 1 tab by mouth, 3x/day
     Route: 048
  5. ENALAPRIL [Concomitant]
     Dosage: 20 mg, by mouth daily
     Route: 048
  6. MEGESTROL ACETATE [Concomitant]
     Dosage: 10 ml, by mouth daily
     Route: 048
  7. PREDNISONE [Concomitant]
     Dosage: 10 mg, by mouth daily
     Route: 048
  8. ZANTAC [Concomitant]
     Dosage: 150 mg, by mouth daily
     Route: 048
  9. SIMVASTATIN [Concomitant]
     Dosage: 20 mg, by mouth at bedtime
     Route: 048

REACTIONS (2)
  - Melaena [Recovered/Resolved]
  - Haematuria [Recovered/Resolved]
